FAERS Safety Report 14934839 (Version 1)
Quarter: 2018Q2

REPORT INFORMATION
  Report Type: Spontaneous
  Country: US (occurrence: US)
  Receive Date: 20180506
  Receipt Date: 20180506
  Transmission Date: 20180711
  Serious: Yes (Other)
  Sender: FDA-Public Use
  Company Number: None

PATIENT
  Age: 55 Year
  Sex: Male
  Weight: 85.5 kg

DRUGS (3)
  1. AMOXICILLIN AND CLAVULANATE POTASSIUM TABLETS 875MG/125 MG [Suspect]
     Active Substance: AMOXICILLIN\CLAVULANATE POTASSIUM
     Indication: MYALGIA
     Dosage: ?          QUANTITY:1 CAPSULE(S);?
     Dates: start: 20140415, end: 20140425
  2. AMOXICILLIN AND CLAVULANATE POTASSIUM TABLETS 875MG/125 MG [Suspect]
     Active Substance: AMOXICILLIN\CLAVULANATE POTASSIUM
     Indication: HEADACHE
     Dosage: ?          QUANTITY:1 CAPSULE(S);?
     Dates: start: 20140415, end: 20140425
  3. AMOXICILLIN AND CLAVULANATE POTASSIUM TABLETS 875MG/125 MG [Suspect]
     Active Substance: AMOXICILLIN\CLAVULANATE POTASSIUM
     Indication: ARTHRALGIA
     Dosage: ?          QUANTITY:1 CAPSULE(S);?
     Dates: start: 20140415, end: 20140425

REACTIONS (2)
  - Dyschezia [None]
  - Diarrhoea [None]

NARRATIVE: CASE EVENT DATE: 20140417
